FAERS Safety Report 14148662 (Version 1)
Quarter: 2017Q4

REPORT INFORMATION
  Report Type: Spontaneous
  Country: US (occurrence: US)
  Receive Date: 20171031
  Receipt Date: 20171031
  Transmission Date: 20180321
  Serious: Yes (Other)
  Sender: FDA-Public Use
  Company Number: None

PATIENT
  Age: 26 Year
  Sex: Female
  Weight: 71.55 kg

DRUGS (6)
  1. MULTIVITAMIN [Concomitant]
     Active Substance: VITAMINS
  2. D3 + K2 [Concomitant]
  3. PROBIOTIC [Concomitant]
     Active Substance: PROBIOTICS NOS
  4. LEXAPRO [Suspect]
     Active Substance: ESCITALOPRAM OXALATE
     Indication: DEPRESSION
     Route: 048
     Dates: start: 20131201, end: 20140101
  5. SPURILINA [Concomitant]
  6. L-LYSINE [Concomitant]
     Active Substance: LYSINE

REACTIONS (2)
  - Disturbance in sexual arousal [None]
  - Loss of libido [None]

NARRATIVE: CASE EVENT DATE: 20140101
